FAERS Safety Report 5679215-0 (Version None)
Quarter: 2008Q1

REPORT INFORMATION
  Report Type: 
  Country: None (occurrence: None)
  Receive Date: 20080325
  Receipt Date: 20080314
  Transmission Date: 20080703
  Serious: Yes (Other)
  Sender: FDA-Public Use
  Company Number: US-PURDUE-USA_2008_0032012

PATIENT
  Sex: Male

DRUGS (4)
  1. OXYCONTIN [Suspect]
     Indication: PAIN
     Dosage: 800 MG, DAILY
  2. XANAX [Concomitant]
     Dosage: 12 MG, UNK
  3. FLUOXETINE [Concomitant]
     Dosage: 20 MG, DAILY
  4. ATIVAN [Concomitant]

REACTIONS (4)
  - DRUG DEPENDENCE [None]
  - DRUG WITHDRAWAL SYNDROME [None]
  - HYPERAESTHESIA [None]
  - SUICIDAL IDEATION [None]
